FAERS Safety Report 4676009-X (Version None)
Quarter: 2005Q2

REPORT INFORMATION
  Report Type: 
  Country: None (occurrence: None)
  Receive Date: 20050527
  Receipt Date: 20050316
  Transmission Date: 20051028
  Serious: No
  Sender: FDA-Public Use
  Company Number: US-GLAXOSMITHKLINE-A0550036A

PATIENT
  Age: 73 Year
  Sex: Female

DRUGS (4)
  1. WELLBUTRIN XL [Suspect]
     Indication: ILL-DEFINED DISORDER
     Dosage: 300MG PER DAY
     Route: 048
     Dates: start: 20030101
  2. DARVOCET [Concomitant]
  3. PAIN MEDICATION [Concomitant]
  4. BLOOD PRESSURE MEDICATION [Concomitant]
     Indication: HYPERTENSION

REACTIONS (2)
  - ENERGY INCREASED [None]
  - MOUTH ULCERATION [None]
